FAERS Safety Report 6691862-6 (Version None)
Quarter: 2010Q2

REPORT INFORMATION
  Report Type: 
  Country: None (occurrence: None)
  Receive Date: 20100422
  Receipt Date: 20100414
  Transmission Date: 20101027
  Serious: Yes (Hospitalization)
  Sender: FDA-Public Use
  Company Number: PHHY2010DE23639

PATIENT
  Sex: Female
  Weight: 85 kg

DRUGS (1)
  1. VOLTAREN [Suspect]
     Indication: BACK PAIN
     Dosage: 25 MG, BID
     Route: 048
     Dates: end: 20100301

REACTIONS (3)
  - PRURITUS GENERALISED [None]
  - RASH [None]
  - RESPIRATORY DISORDER [None]
